FAERS Safety Report 22243228 (Version 1)
Quarter: 2023Q2

REPORT INFORMATION
  Report Type: Spontaneous
  Country: CN (occurrence: CN)
  Receive Date: 20230424
  Receipt Date: 20230424
  Transmission Date: 20230721
  Serious: Yes (Other)
  Sender: FDA-Public Use
  Company Number: CN-PFIZER INC-PV202300068338

PATIENT
  Age: 12 Year
  Sex: Female

DRUGS (11)
  1. VORICONAZOLE [Interacting]
     Active Substance: VORICONAZOLE
     Indication: Fungal infection
     Dosage: UNK
     Route: 042
  2. CASPOFUNGIN [Suspect]
     Active Substance: CASPOFUNGIN
     Indication: Fungal infection
     Dosage: UNK
     Route: 042
  3. NIFEDIPINE [Interacting]
     Active Substance: NIFEDIPINE
     Indication: Haemorrhage intracranial
     Dosage: UNK
     Route: 048
  4. METHYLPREDNISOLONE [Concomitant]
     Active Substance: METHYLPREDNISOLONE
     Indication: Haemorrhage intracranial
     Dosage: UNK
     Route: 042
  5. IMMUNE GLOBULIN NOS [Concomitant]
     Active Substance: IMMUNE GLOBULIN NOS
     Indication: Haemorrhage intracranial
     Dosage: UNK
     Route: 042
  6. RITUXIMAB [Concomitant]
     Active Substance: RITUXIMAB
     Indication: Haemorrhage intracranial
     Dosage: UNK
     Route: 042
  7. PRAZOSIN [Concomitant]
     Active Substance: PRAZOSIN
     Indication: Haemorrhage intracranial
     Dosage: UNK
     Route: 048
  8. FOSINOPRIL [Concomitant]
     Active Substance: FOSINOPRIL
     Indication: Haemorrhage intracranial
     Dosage: UNK
     Route: 048
  9. LABETALOL [Concomitant]
     Active Substance: LABETALOL\LABETALOL HYDROCHLORIDE
     Indication: Haemorrhage intracranial
     Route: 048
  10. LEVETIRACETAM [Concomitant]
     Active Substance: LEVETIRACETAM
     Indication: Haemorrhage intracranial
     Dosage: 0.5 G, 2X/DAY
     Route: 048
  11. LEVETIRACETAM [Concomitant]
     Active Substance: LEVETIRACETAM
     Dosage: 0.6 G, 2X/DAY
     Route: 048

REACTIONS (3)
  - Drug interaction [Unknown]
  - Hypertensive encephalopathy [Unknown]
  - Seizure [Unknown]
